FAERS Safety Report 8709949 (Version 2)
Quarter: 2012Q4

REPORT INFORMATION
  Report Type: 
  Country: ES (occurrence: ES)
  Receive Date: 20120806
  Receipt Date: 20120829
  Transmission Date: 20130627
  Serious: Yes (Hospitalization)
  Sender: FDA-Public Use
  Company Number: ES-JNJFOC-20120800123

PATIENT
  Age: 5 Year
  Sex: Male

DRUGS (3)
  1. RISPERDAL [Suspect]
     Indication: ABNORMAL BEHAVIOUR
     Dosage: dates unknown but reported as two months ago
     Route: 065
  2. CLOPERASTINE [Interacting]
     Indication: COUGH
     Route: 048
  3. IBUPROFEN [Concomitant]
     Indication: COUGH
     Route: 065

REACTIONS (2)
  - Oculogyric crisis [Recovered/Resolved]
  - Drug interaction [Recovered/Resolved]
